FAERS Safety Report 17526880 (Version 1)
Quarter: 2020Q1

REPORT INFORMATION
  Report Type: Spontaneous
  Country: US (occurrence: US)
  Receive Date: 20200311
  Receipt Date: 20200311
  Transmission Date: 20200409
  Serious: Yes (Other)
  Sender: FDA-Public Use
  Company Number: None

PATIENT
  Age: 59 Year
  Sex: Female
  Weight: 69.4 kg

DRUGS (2)
  1. ADHESIVE PATCHES FROM HEART MONITOR [Concomitant]
     Dates: start: 20200125
  2. MAVYRET [Suspect]
     Active Substance: GLECAPREVIR\PIBRENTASVIR
     Indication: HEPATITIS C
     Route: 048
     Dates: start: 20200129

REACTIONS (2)
  - Skin lesion [None]
  - Rash [None]

NARRATIVE: CASE EVENT DATE: 20200226
